FAERS Safety Report 9646565 (Version 1)
Quarter: 2013Q4

REPORT INFORMATION
  Report Type: Spontaneous
  Country: JP (occurrence: JP)
  Receive Date: 20131025
  Receipt Date: 20131025
  Transmission Date: 20140711
  Serious: Yes (Hospitalization)
  Sender: FDA-Public Use
  Company Number: JP-ALLERGAN-1316819US

PATIENT
  Sex: Female

DRUGS (2)
  1. ALPHAGAN [Suspect]
     Indication: PRODUCT USED FOR UNKNOWN INDICATION
     Dosage: UNK
     Route: 047
     Dates: start: 20131015
  2. ANTIHYPERTENSIVE [Concomitant]
     Route: 048

REACTIONS (2)
  - Vomiting [Recovered/Resolved]
  - Dizziness [Recovered/Resolved]
